FAERS Safety Report 10166087 (Version 2)
Quarter: 2014Q2

REPORT INFORMATION
  Report Type: Not Available
  Country: DE (occurrence: DE)
  Receive Date: 20140512
  Receipt Date: 20140619
  Transmission Date: 20141212
  Serious: No
  Sender: FDA-Public Use
  Company Number: DE-LUPIN PHARMACEUTICALS INC.-2014-00920

PATIENT
  Sex: Female

DRUGS (2)
  1. IRBESARTAN-HORMOSAN 75 MG [Suspect]
     Indication: PRODUCT USED FOR UNKNOWN INDICATION
     Route: 065
  2. IRBESARTAN-HORMOSAN 75 MG [Suspect]
     Route: 065

REACTIONS (2)
  - Hypotension [Unknown]
  - Wrong technique in drug usage process [Unknown]
